FAERS Safety Report 25253761 (Version 3)
Quarter: 2025Q3

REPORT INFORMATION
  Report Type: Spontaneous
  Country: US (occurrence: US)
  Receive Date: 20250430
  Receipt Date: 20250904
  Transmission Date: 20251021
  Serious: Yes (Hospitalization, Other)
  Sender: BRISTOL-MYERS SQUIBB COMPANY
  Company Number: US-BRISTOL-MYERS SQUIBB COMPANY-2025-062923

PATIENT
  Age: 76 Year
  Sex: Female
  Weight: 71.21 kg

DRUGS (3)
  1. ONUREG [Suspect]
     Active Substance: AZACITIDINE
     Indication: Acute myeloid leukaemia
     Route: 048
  2. ONUREG [Suspect]
     Active Substance: AZACITIDINE
     Dosage: DAILY FOR 14 DAYS ON THEN 14 DAYS OFF
     Route: 048
  3. ONUREG [Suspect]
     Active Substance: AZACITIDINE
     Route: 048

REACTIONS (9)
  - Burning sensation [Not Recovered/Not Resolved]
  - Eye irritation [Not Recovered/Not Resolved]
  - Vomiting [Not Recovered/Not Resolved]
  - Nausea [Unknown]
  - Asthenia [Unknown]
  - Loss of consciousness [Unknown]
  - Syncope [Unknown]
  - Head injury [Unknown]
  - Visual impairment [Unknown]
